FAERS Safety Report 23911300 (Version 1)
Quarter: 2024Q2

REPORT INFORMATION
  Report Type: Spontaneous
  Country: US (occurrence: None)
  Receive Date: 20240528
  Receipt Date: 20240528
  Transmission Date: 20240716
  Serious: Yes (Other)
  Sender: FDA-Public Use
  Company Number: None

PATIENT
  Age: 29 Year
  Sex: Female
  Weight: 101.4 kg

DRUGS (2)
  1. LEVOTHYROXINE [Suspect]
     Active Substance: LEVOTHYROXINE\LEVOTHYROXINE SODIUM
     Indication: Autoimmune thyroiditis
     Dosage: 1  TABLET DAILY ORAL?
     Route: 048
     Dates: start: 20240513, end: 20240523
  2. SYNTHROID [Suspect]
     Active Substance: LEVOTHYROXINE SODIUM
     Indication: Autoimmune thyroiditis
     Dosage: 1 TABLET DAILY ORAL?
     Route: 048
     Dates: start: 20240525, end: 20240525

REACTIONS (4)
  - Swelling [None]
  - Dry throat [None]
  - Dysphagia [None]
  - Drug hypersensitivity [None]

NARRATIVE: CASE EVENT DATE: 20240523
